FAERS Safety Report 7440543-X (Version None)
Quarter: 2011Q2

REPORT INFORMATION
  Report Type: 
  Country: None (occurrence: None)
  Receive Date: 20110427
  Receipt Date: 20110420
  Transmission Date: 20111010
  Serious: Yes (Hospitalization)
  Sender: FDA-Public Use
  Company Number: A0905939A

PATIENT
  Age: 60 Year
  Sex: Male
  Weight: 100.9 kg

DRUGS (9)
  1. GLIPIZIDE [Concomitant]
  2. LOVASTATIN [Concomitant]
  3. TEKTURNA [Concomitant]
  4. DIOVAN HCT [Concomitant]
  5. LASIX [Concomitant]
  6. ASPIRIN [Concomitant]
  7. AVANDIA [Suspect]
     Route: 048
     Dates: start: 20000425, end: 20100125
  8. LISINOPRIL [Concomitant]
  9. TOPROL-XL [Concomitant]

REACTIONS (5)
  - MYOCARDIAL ISCHAEMIA [None]
  - AORTIC ANEURYSM [None]
  - PAIN [None]
  - CORONARY ARTERY DISEASE [None]
  - MYOCARDIAL INFARCTION [None]
